FAERS Safety Report 23235059 (Version 1)
Quarter: 2023Q4

REPORT INFORMATION
  Report Type: Spontaneous
  Country: US (occurrence: US)
  Receive Date: 20231128
  Receipt Date: 20231128
  Transmission Date: 20240110
  Serious: Yes (Hospitalization)
  Sender: FDA-Public Use
  Company Number: US-AMGEN-USASP2023207765

PATIENT
  Age: 46 Year
  Sex: Female

DRUGS (1)
  1. BLINCYTO [Suspect]
     Active Substance: BLINATUMOMAB
     Indication: Acute lymphocytic leukaemia
     Dosage: 28 MICROGRAM, QD (EVERY 24 HOURS)
     Route: 065

REACTIONS (3)
  - Peripheral swelling [Unknown]
  - Pain in extremity [Unknown]
  - Pyrexia [Unknown]

NARRATIVE: CASE EVENT DATE: 20231119
